FAERS Safety Report 5928223-0 (Version None)
Quarter: 2008Q4

REPORT INFORMATION
  Report Type: 
  Country: None (occurrence: None)
  Receive Date: 20081023
  Receipt Date: 20081016
  Transmission Date: 20090506
  Serious: Yes (Other)
  Sender: FDA-Public Use
  Company Number: US-MERCK-0809USA01256

PATIENT
  Age: 74 Year
  Sex: Female

DRUGS (4)
  1. FOSAMAX [Suspect]
     Route: 048
     Dates: start: 20020101, end: 20050101
  2. LEVOTHYROXINE SODIUM [Concomitant]
     Route: 065
  3. BONIVA [Suspect]
     Indication: OSTEOPOROSIS
     Route: 048
     Dates: start: 20050101
  4. ZESTRIL [Concomitant]
     Route: 065

REACTIONS (1)
  - RESORPTION BONE INCREASED [None]
